FAERS Safety Report 8979677 (Version 1)
Quarter: 2012Q4

REPORT INFORMATION
  Report Type: 
  Country: FR (occurrence: FR)
  Receive Date: 20121221
  Receipt Date: 20121221
  Transmission Date: 20130627
  Serious: Yes (Other)
  Sender: FDA-Public Use
  Company Number: FR-ASTELLAS-2012EU005077

PATIENT
  Age: 37 Year
  Sex: Female
  Weight: 74 kg

DRUGS (5)
  1. PROGRAF [Suspect]
     Indication: PROPHYLAXIS AGAINST TRANSPLANT REJECTION
     Dosage: 2 mg, bid
     Route: 065
     Dates: start: 201207
  2. PROGRAF [Suspect]
     Dosage: 1.5 mg, bid
     Route: 065
     Dates: start: 200406
  3. IMUREL                             /00001501/ [Concomitant]
     Indication: RENAL TRANSPLANT
     Dosage: 100 mg, UID/QD
     Route: 048
  4. CORTANCYL [Concomitant]
     Indication: RENAL TRANSPLANT
     Dosage: 7.5 mg, UID/QD
     Route: 048
  5. TAHOR [Concomitant]
     Indication: HYPERCHOLESTEROLAEMIA
     Dosage: 40 mg, UID/QD
     Route: 048
     Dates: end: 201205

REACTIONS (3)
  - Exposure during pregnancy [Unknown]
  - Abortion induced [Unknown]
  - Immunosuppressant drug level decreased [Recovered/Resolved]
